FAERS Safety Report 4781882-0 (Version None)
Quarter: 2005Q3

REPORT INFORMATION
  Report Type: 
  Country: None (occurrence: None)
  Receive Date: 20050928
  Receipt Date: 20050812
  Transmission Date: 20060218
  Serious: Yes (Hospitalization)
  Sender: FDA-Public Use
  Company Number: DE-BOEHRINGER INGELHEIM PHARMACEUTICALS, INC.-2005-DE-03176DE

PATIENT
  Sex: Male
  Weight: 73 kg

DRUGS (3)
  1. TIPRANAVIR + RITONAVIR CO-ADMIN [Suspect]
     Indication: HIV INFECTION
     Dosage: TIPRANAVIR 1000 MG/RTV 400 MG
     Route: 048
     Dates: start: 20030814
  2. EFAVIRENZ [Concomitant]
     Indication: HIV INFECTION
     Route: 048
     Dates: start: 20030814
  3. TENOFOVIR [Concomitant]
     Indication: HIV INFECTION
     Route: 048
     Dates: start: 20030814

REACTIONS (3)
  - ANAL CANCER [None]
  - CONDYLOMA ACUMINATUM [None]
  - SQUAMOUS CELL CARCINOMA [None]
